FAERS Safety Report 9775544 (Version 2)
Quarter: 2014Q1

REPORT INFORMATION
  Report Type: Spontaneous
  Country: US (occurrence: US)
  Receive Date: 20131220
  Receipt Date: 20140318
  Transmission Date: 20141002
  Serious: No
  Sender: FDA-Public Use
  Company Number: US-GALDERMA-US13003724

PATIENT
  Age: 43 Year
  Sex: Female

DRUGS (5)
  1. MIRVASO (BRIMONIDINE) TOPICAL GEL, 0.33% [Suspect]
     Indication: ROSACEA
     Dosage: 0.33%
     Route: 061
     Dates: start: 20131120, end: 20131125
  2. GLUCOSAMINE MSM [Concomitant]
  3. VITAMIN D [Concomitant]
     Route: 048
  4. MAGNESIUM MALATE [Concomitant]
  5. ONE-A-DAY VITAMIN [Concomitant]

REACTIONS (3)
  - Lip discolouration [Recovered/Resolved]
  - Condition aggravated [Recovered/Resolved]
  - Rash macular [Recovered/Resolved]
